FAERS Safety Report 10185829 (Version 1)
Quarter: 2014Q2

REPORT INFORMATION
  Report Type: Spontaneous
  Country: ES (occurrence: ES)
  Receive Date: 20140521
  Receipt Date: 20140521
  Transmission Date: 20141212
  Serious: Yes (Hospitalization, Other)
  Sender: FDA-Public Use
  Company Number: ES-ROXANE LABORATORIES, INC.-2014-RO-00766RO

PATIENT
  Age: 53 Year
  Sex: Female

DRUGS (8)
  1. METHOTREXATE [Suspect]
     Indication: RHEUMATOID ARTHRITIS
     Dosage: 10 MG
     Route: 048
  2. FOLIC ACID [Concomitant]
     Route: 065
  3. HYDROXYCHLOROQUINE [Concomitant]
     Route: 065
  4. IBUPROFEN [Concomitant]
     Route: 065
  5. PREDNISONE [Concomitant]
     Route: 065
  6. SIMVASTATIN [Concomitant]
     Route: 065
  7. LEVOTHYROXINE [Concomitant]
     Route: 065
  8. OMEPRAZOLE [Concomitant]
     Route: 065

REACTIONS (7)
  - Toxicity to various agents [Recovered/Resolved]
  - Mouth ulceration [Recovered/Resolved]
  - Renal failure [Recovered/Resolved]
  - Pancytopenia [Recovered/Resolved]
  - Atelectasis [Recovered/Resolved]
  - Hepatic function abnormal [Recovered/Resolved]
  - Hypokalaemia [Recovered/Resolved]
